FAERS Safety Report 10472148 (Version 10)
Quarter: 2016Q3

REPORT INFORMATION
  Report Type: Spontaneous
  Country: US (occurrence: US)
  Receive Date: 20140924
  Receipt Date: 20160907
  Transmission Date: 20161109
  Serious: Yes (Death, Hospitalization)
  Sender: FDA-Public Use
  Company Number: US-JNJFOC-20140915449

PATIENT
  Age: 17 Year
  Sex: Female
  Weight: 47.63 kg

DRUGS (5)
  1. SEASONIQUE [Concomitant]
     Active Substance: ETHINYL ESTRADIOL\LEVONORGESTREL
     Indication: PRODUCT USED FOR UNKNOWN INDICATION
     Route: 065
  2. IBUPROFEN. [Suspect]
     Active Substance: IBUPROFEN
     Indication: PRODUCT USED FOR UNKNOWN INDICATION
     Dosage: ONE DOSE
     Route: 065
  3. ZOLOFT [Concomitant]
     Active Substance: SERTRALINE HYDROCHLORIDE
     Indication: DEPRESSION
     Route: 065
  4. TYLENOL REGULAR STRENGTH [Suspect]
     Active Substance: ACETAMINOPHEN
     Indication: PAIN
     Dosage: 4-5 PILLS PER DAY; TOTAL INGESTED: 1300-1625 MG
     Route: 048
     Dates: start: 20101206, end: 20101213
  5. IBUPROFEN. [Suspect]
     Active Substance: IBUPROFEN
     Route: 065

REACTIONS (7)
  - Metabolic acidosis [Fatal]
  - Respiratory failure [Unknown]
  - Ventricular arrhythmia [Fatal]
  - Acute hepatic failure [Fatal]
  - Leukocytosis [Unknown]
  - Toxicity to various agents [Fatal]
  - Coagulopathy [Fatal]

NARRATIVE: CASE EVENT DATE: 201012
